FAERS Safety Report 18627353 (Version 1)
Quarter: 2020Q4

REPORT INFORMATION
  Report Type: Spontaneous
  Country: US (occurrence: US)
  Receive Date: 20201217
  Receipt Date: 20201217
  Transmission Date: 20210114
  Serious: No
  Sender: FDA-Public Use
  Company Number: US-AMGEN-USASP2020202456

PATIENT
  Sex: Male

DRUGS (11)
  1. SORILUX [Concomitant]
     Active Substance: CALCIPOTRIENE
  2. DERMA SMOOTH [Concomitant]
  3. TEMOVATE [Concomitant]
     Active Substance: CLOBETASOL PROPIONATE
  4. VANOS [Concomitant]
     Active Substance: FLUOCINONIDE
  5. CLOBETASOL [Concomitant]
     Active Substance: CLOBETASOL
  6. OTEZLA [Suspect]
     Active Substance: APREMILAST
     Indication: PSORIASIS
     Dosage: 30 MILLIGRAM, BID
     Route: 048
     Dates: start: 20180130
  7. OLUX [Concomitant]
     Active Substance: CLOBETASOL PROPIONATE
  8. TACLONEX [Concomitant]
     Active Substance: BETAMETHASONE DIPROPIONATE\CALCIPOTRIENE\CALCIPOTRIENE HYDRATE
  9. CALCIPOTRIENE. [Concomitant]
     Active Substance: CALCIPOTRIENE
  10. CLOBEX [CLOXACILLIN SODIUM] [Concomitant]
  11. VECTICAL [Concomitant]
     Active Substance: CALCITRIOL

REACTIONS (1)
  - Diarrhoea [Not Recovered/Not Resolved]
